FAERS Safety Report 13664185 (Version 1)
Quarter: 2017Q2

REPORT INFORMATION
  Report Type: Spontaneous
  Country: US (occurrence: US)
  Receive Date: 20170619
  Receipt Date: 20170619
  Transmission Date: 20170830
  Serious: Yes (Hospitalization)
  Sender: FDA-Public Use
  Company Number: US-SUNOVION-2017SUN002563

PATIENT
  Sex: Male

DRUGS (2)
  1. LATUDA [Suspect]
     Active Substance: LURASIDONE HYDROCHLORIDE
     Dosage: UNK
     Route: 048
  2. LITHIUM. [Suspect]
     Active Substance: LITHIUM
     Dosage: UNK

REACTIONS (7)
  - Hallucination, auditory [Recovered/Resolved]
  - Insomnia [Unknown]
  - Frustration tolerance decreased [Not Recovered/Not Resolved]
  - Confusional state [Unknown]
  - Weight decreased [Recovered/Resolved]
  - Aggression [Recovered/Resolved]
  - Anger [Not Recovered/Not Resolved]
